FAERS Safety Report 11813479 (Version 3)
Quarter: 2016Q1

REPORT INFORMATION
  Report Type: Spontaneous
  Country: FR (occurrence: FR)
  Receive Date: 20151209
  Receipt Date: 20160304
  Transmission Date: 20160525
  Serious: Yes (Death, Hospitalization, Other)
  Sender: FDA-Public Use
  Company Number: FR-CELGENE-056-21880-13125337

PATIENT

DRUGS (2)
  1. REVLIMID [Suspect]
     Active Substance: LENALIDOMIDE
     Indication: ACUTE MYELOID LEUKAEMIA
     Route: 048
  2. VIDAZA [Suspect]
     Active Substance: AZACITIDINE
     Indication: ACUTE MYELOID LEUKAEMIA
     Route: 065

REACTIONS (17)
  - Aplastic anaemia [Fatal]
  - Fatigue [Unknown]
  - Platelet count decreased [Unknown]
  - Sudden death [Fatal]
  - Hepatitis [Unknown]
  - Haemorrhage [Unknown]
  - Haematotoxicity [Unknown]
  - Infection [Unknown]
  - Cardiac disorder [Unknown]
  - Atrial fibrillation [Unknown]
  - Vascular purpura [Unknown]
  - Diarrhoea [Unknown]
  - Febrile neutropenia [Unknown]
  - Depression [Unknown]
  - Neutrophil count decreased [Unknown]
  - Acute myeloid leukaemia recurrent [Unknown]
  - Treatment failure [Unknown]
